FAERS Safety Report 7873854-4 (Version None)
Quarter: 2011Q4

REPORT INFORMATION
  Report Type: 
  Country: None (occurrence: None)
  Receive Date: 20111017
  Receipt Date: 20110125
  Transmission Date: 20120403
  Serious: Yes (Disabling)
  Sender: FDA-Public Use
  Company Number: 2011S1000037

PATIENT
  Sex: Male

DRUGS (1)
  1. DARVOCET-N 100 [Suspect]
     Dosage: ORAL
     Route: 048
     Dates: start: 20000101, end: 20101101

REACTIONS (3)
  - CHEST PAIN [None]
  - DIZZINESS [None]
  - CARDIAC DISORDER [None]
